FAERS Safety Report 6472969-5 (Version None)
Quarter: 2009Q4

REPORT INFORMATION
  Report Type: 
  Country: None (occurrence: None)
  Receive Date: 20091204
  Receipt Date: 20091124
  Transmission Date: 20100525
  Serious: Yes (Other)
  Sender: FDA-Public Use
  Company Number: US-RB-026251-09

PATIENT
  Age: 10 Year
  Sex: Male
  Weight: 63 kg

DRUGS (4)
  1. MUCINEX CHILDRENS CHERRY [Suspect]
     Dosage: TOOK 2 OR 3 TEASPOONS OF PRODUCT EVERY 4 HOURS
     Route: 048
     Dates: start: 20091117
  2. MUCINEX CHILDRENS CHERRY [Suspect]
     Indication: BRONCHITIS
     Dosage: TOOK 2 OR 3 TEASPOONS OF PRODUCT EVERY 4 HOURS
     Route: 048
     Dates: start: 20091117
  3. COUGH SYRUP [Concomitant]
  4. HOMEOPATHIC MEDICATION [Concomitant]

REACTIONS (6)
  - DIZZINESS [None]
  - FEELING ABNORMAL [None]
  - HALLUCINATION [None]
  - HEADACHE [None]
  - PAIN [None]
  - PAIN IN EXTREMITY [None]
